FAERS Safety Report 20494889 (Version 2)
Quarter: 2022Q1

REPORT INFORMATION
  Report Type: Spontaneous
  Country: ES (occurrence: ES)
  Receive Date: 20220221
  Receipt Date: 20220301
  Transmission Date: 20220423
  Serious: Yes (Hospitalization, Other)
  Sender: FDA-Public Use
  Company Number: ES-Accord-254164

PATIENT
  Age: 61 Year
  Sex: Male
  Weight: 58 kg

DRUGS (17)
  1. TACROLIMUS [Suspect]
     Active Substance: TACROLIMUS
     Indication: Transplant rejection
     Dates: end: 2021
  2. TOBRAMYCIN [Suspect]
     Active Substance: TOBRAMYCIN
     Indication: Burkholderia cepacia complex infection
     Route: 055
     Dates: start: 202108, end: 2021
  3. VALGANCICLOVIR HYDROCHLORIDE [Suspect]
     Active Substance: VALGANCICLOVIR HYDROCHLORIDE
     Indication: Product used for unknown indication
     Dates: end: 2021
  4. CEFTAZIDIME [Concomitant]
     Active Substance: CEFTAZIDIME
     Indication: Burkholderia cepacia complex infection
     Route: 055
     Dates: end: 2021
  5. OMEPRAZOLE [Concomitant]
     Active Substance: OMEPRAZOLE
     Dates: end: 2021
  6. CALCIUM [Concomitant]
     Active Substance: CALCIUM
     Dates: end: 2021
  7. SPIRONOLACTONE [Concomitant]
     Active Substance: SPIRONOLACTONE
     Dates: end: 2021
  8. SULFAMETHOXAZOLE\TRIMETHOPRIM [Concomitant]
     Active Substance: SULFAMETHOXAZOLE\TRIMETHOPRIM
     Dates: end: 2021
  9. ALLOPURINOL [Concomitant]
     Active Substance: ALLOPURINOL
     Dates: end: 2021
  10. AZITHROMYCIN [Concomitant]
     Active Substance: AZITHROMYCIN
     Dates: end: 2021
  11. ATORVASTATIN [Concomitant]
     Active Substance: ATORVASTATIN
     Dates: end: 2021
  12. CALCIFEDIOL [Concomitant]
     Active Substance: CALCIFEDIOL
     Dates: end: 2021
  13. FUROSEMIDE [Concomitant]
     Active Substance: FUROSEMIDE
     Dates: end: 2021
  14. ZOLPIDEM [Concomitant]
     Active Substance: ZOLPIDEM TARTRATE
     Dates: end: 2021
  15. EVEROLIMUS [Concomitant]
     Active Substance: EVEROLIMUS
     Indication: Transplant rejection
     Dates: end: 2021
  16. PREDNISONE [Concomitant]
     Active Substance: PREDNISONE
     Dates: end: 2021
  17. MAGNESIUM [Concomitant]
     Active Substance: MAGNESIUM
     Dates: end: 2021

REACTIONS (3)
  - Chronic kidney disease [Recovered/Resolved]
  - Drug level increased [Recovered/Resolved]
  - Renal failure [Recovered/Resolved]

NARRATIVE: CASE EVENT DATE: 20210920
